FAERS Safety Report 9845262 (Version 3)
Quarter: 2014Q1

REPORT INFORMATION
  Report Type: Spontaneous
  Country: JP (occurrence: JP)
  Receive Date: 20140127
  Receipt Date: 20140306
  Transmission Date: 20141002
  Serious: Yes (Hospitalization)
  Sender: FDA-Public Use
  Company Number: JP-ASTELLAS-2014JP000542

PATIENT
  Age: 63 Year
  Sex: Female

DRUGS (8)
  1. PROGRAF [Suspect]
     Indication: SYSTEMIC LUPUS ERYTHEMATOSUS
     Dosage: 3 MG, UNKNOWN/D
     Route: 048
     Dates: end: 201401
  2. PROGRAF [Suspect]
     Indication: RHEUMATOID ARTHRITIS
     Dosage: UNK
     Route: 048
     Dates: start: 201402
  3. ITOROL [Concomitant]
     Route: 048
  4. PREDONINE                          /00016201/ [Concomitant]
     Route: 048
  5. BAYASPIRIN [Concomitant]
     Route: 048
  6. ACTONEL [Concomitant]
     Route: 048
  7. GASTROM [Concomitant]
     Route: 048
  8. TAKEPRON [Concomitant]
     Route: 048

REACTIONS (3)
  - Fall [Recovered/Resolved]
  - Fracture [Recovered/Resolved]
  - Joint dislocation [Recovered/Resolved]
